FAERS Safety Report 17025490 (Version 1)
Quarter: 2019Q4

REPORT INFORMATION
  Report Type: Report from Study
  Country: IT (occurrence: IT)
  Receive Date: 20191113
  Receipt Date: 20191113
  Transmission Date: 20200122
  Serious: Yes (Other)
  Sender: FDA-Public Use
  Company Number: PHHY2014IT070863

PATIENT
  Age: 40 Year
  Sex: Female

DRUGS (3)
  1. SATIVEX [Concomitant]
     Active Substance: NABIXIMOLS
     Indication: MUSCLE SPASTICITY
     Dosage: UNK
     Route: 065
     Dates: start: 20150514
  2. LIORESAL [Concomitant]
     Active Substance: BACLOFEN
     Indication: MUSCLE SPASTICITY
     Dosage: UNK
     Route: 065
     Dates: start: 20150514
  3. GILENYA [Suspect]
     Active Substance: FINGOLIMOD HYDROCHLORIDE
     Indication: MULTIPLE SCLEROSIS
     Dosage: 0.5 MG, QD
     Route: 048
     Dates: start: 20140107, end: 20190518

REACTIONS (7)
  - Muscle spasms [Unknown]
  - Lymphopenia [Not Recovered/Not Resolved]
  - Leukopenia [Recovering/Resolving]
  - Alanine aminotransferase increased [Unknown]
  - Gamma-glutamyltransferase increased [Unknown]
  - Abdominal pain [Recovered/Resolved]
  - Menstruation delayed [Recovered/Resolved]

NARRATIVE: CASE EVENT DATE: 20140215
